FAERS Safety Report 9625236 (Version 2)
Quarter: 2013Q4

REPORT INFORMATION
  Report Type: Spontaneous
  Country: US (occurrence: US)
  Receive Date: 20131016
  Receipt Date: 20131111
  Transmission Date: 20140711
  Serious: No
  Sender: FDA-Public Use
  Company Number: US-PFIZER INC-2013293979

PATIENT
  Age: 55 Year
  Sex: Female
  Weight: 68.03 kg

DRUGS (6)
  1. XELJANZ [Suspect]
     Indication: RHEUMATOID ARTHRITIS
     Dosage: 5 MG, 2X/DAY
     Route: 048
     Dates: start: 20130210, end: 20130424
  2. ADVIL [Concomitant]
     Dosage: 200 MG, UNK
  3. RANITIDINE [Concomitant]
     Dosage: 150 MG, UNK
  4. AMOXICILLIN [Concomitant]
     Dosage: 250 MG, UNK
  5. LISINOPRIL [Concomitant]
     Dosage: 30 MG, UNK
  6. PREMPRO [Concomitant]
     Dosage: 0.3 ESTROGENS CONJUGATED AND 1.5 MEDROXYPROGESTERONE ACETATE

REACTIONS (1)
  - Fatigue [Recovering/Resolving]
